FAERS Safety Report 8007217-8 (Version None)
Quarter: 2011Q4

REPORT INFORMATION
  Report Type: 
  Country: None (occurrence: None)
  Receive Date: 20111227
  Receipt Date: 20111220
  Transmission Date: 20120403
  Serious: Yes (Other)
  Sender: FDA-Public Use
  Company Number: BR-PFIZER INC-2011302988

PATIENT
  Age: 46 Year
  Sex: Male
  Weight: 63 kg

DRUGS (4)
  1. CLONAZEPAM [Concomitant]
     Indication: DEPRESSION
     Dosage: UNK
  2. CLONAZEPAM [Concomitant]
     Indication: ANTIDEPRESSANT THERAPY
  3. VARENICLINE TARTRATE [Suspect]
     Indication: SMOKING CESSATION THERAPY
     Dosage: UNK
     Route: 048
     Dates: start: 20111128, end: 20110101
  4. VARENICLINE TARTRATE [Suspect]
     Dosage: 1 MG, 2X/DAY
     Route: 048
     Dates: start: 20110101

REACTIONS (1)
  - ALCOHOLISM [None]
